FAERS Safety Report 14699164 (Version 2)
Quarter: 2018Q2

REPORT INFORMATION
  Report Type: Report from Study
  Country: US (occurrence: US)
  Receive Date: 20180330
  Receipt Date: 20180413
  Transmission Date: 20180711
  Serious: Yes (Hospitalization, Other)
  Sender: FDA-Public Use
  Company Number: US-AMGEN-USASL2018034072

PATIENT
  Age: 72 Year
  Sex: Male

DRUGS (2)
  1. REPATHA [Suspect]
     Active Substance: EVOLOCUMAB
     Indication: BLOOD CHOLESTEROL INCREASED
     Dosage: 140 MG, Q2WK
     Route: 065
     Dates: end: 201803
  2. REPATHA [Suspect]
     Active Substance: EVOLOCUMAB
     Indication: HYPERCHOLESTEROLAEMIA
     Dosage: 140 MG, Q2WK
     Route: 065
     Dates: start: 2017

REACTIONS (14)
  - Speech disorder [Not Recovered/Not Resolved]
  - Impaired work ability [Recovered/Resolved]
  - Disorientation [Unknown]
  - Disability [Not Recovered/Not Resolved]
  - Sleep disorder due to a general medical condition [Unknown]
  - Wheezing [Unknown]
  - Arthralgia [Unknown]
  - Gait disturbance [Unknown]
  - Pain in extremity [Not Recovered/Not Resolved]
  - Dizziness [Unknown]
  - Back pain [Unknown]
  - Dyspnoea [Not Recovered/Not Resolved]
  - Gastric haemorrhage [Unknown]
  - Influenza [Not Recovered/Not Resolved]

NARRATIVE: CASE EVENT DATE: 201803
